FAERS Safety Report 25729628 (Version 1)
Quarter: 2025Q3

REPORT INFORMATION
  Report Type: Spontaneous
  Country: US (occurrence: None)
  Receive Date: 20250826
  Receipt Date: 20250826
  Transmission Date: 20251020
  Serious: Yes (Other)
  Sender: FDA-CTU
  Company Number: None

PATIENT
  Age: 70 Year
  Sex: Male

DRUGS (4)
  1. DUPIXENT [Suspect]
     Active Substance: DUPILUMAB
     Indication: Nasal polyps
     Dosage: FREQUENCY : EVERY OTHER WEEK;?
     Route: 058
     Dates: start: 20240318
  2. LISINOPRIL [Concomitant]
     Active Substance: LISINOPRIL
  3. MONTELUKAST [Concomitant]
     Active Substance: MONTELUKAST
  4. ZYRTEC-D 12 HR [Concomitant]

REACTIONS (1)
  - Macular degeneration [None]

NARRATIVE: CASE EVENT DATE: 20250501
